FAERS Safety Report 11788780 (Version 1)
Quarter: 2015Q4

REPORT INFORMATION
  Report Type: Spontaneous
  Country: US (occurrence: None)
  Receive Date: 20151130
  Receipt Date: 20151130
  Transmission Date: 20160305
  Serious: Yes (Life-Threatening, Disabling)
  Sender: FDA-Public Use
  Company Number: None

PATIENT
  Age: 62 Year
  Sex: Female
  Weight: 47.63 kg

DRUGS (12)
  1. CALCIUM 500 MG + D [Concomitant]
  2. LASIX [Concomitant]
     Active Substance: FUROSEMIDE
  3. VIT. D [Concomitant]
  4. VITAMINS [Concomitant]
     Active Substance: VITAMINS
  5. KYPROLIS [Suspect]
     Active Substance: CARFILZOMIB
     Indication: PLASMA CELL MYELOMA
     Dosage: 2 X WK, 3 WKS
     Route: 042
  6. POTASSIUM [Concomitant]
     Active Substance: POTASSIUM
  7. TERMERIC [Concomitant]
  8. ASPIRIN. [Concomitant]
     Active Substance: ASPIRIN
  9. IRON [Concomitant]
     Active Substance: IRON
  10. DEXAMETHASONE. [Concomitant]
     Active Substance: DEXAMETHASONE
  11. ACYCLOVAIR [Concomitant]
  12. POMALYST [Concomitant]
     Active Substance: POMALIDOMIDE

REACTIONS (14)
  - Infusion related reaction [None]
  - Chest pain [None]
  - Pyrexia [None]
  - Flushing [None]
  - Swelling [None]
  - Chills [None]
  - Chest discomfort [None]
  - Vomiting [None]
  - Hypotension [None]
  - Asthenia [None]
  - Dyspnoea [None]
  - Myalgia [None]
  - Syncope [None]
  - Arthralgia [None]

NARRATIVE: CASE EVENT DATE: 20151125
